FAERS Safety Report 4738757-2 (Version None)
Quarter: 2005Q3

REPORT INFORMATION
  Report Type: 
  Country: None (occurrence: None)
  Receive Date: 20050808
  Receipt Date: 20050808
  Transmission Date: 20060218
  Serious: Yes (Other)
  Sender: FDA-Public Use
  Company Number: None

PATIENT
  Sex: Female
  Weight: 58.9676 kg

DRUGS (3)
  1. AMITRIPTYLINE 100 MG GENEVA/SANDOZ [Suspect]
     Indication: RESTLESS LEGS SYNDROME
     Dosage: 1 QD ORAL
     Route: 048
     Dates: start: 20050801, end: 20050801
  2. ADDERALL XR 15 [Concomitant]
  3. FLUOXETINE [Concomitant]

REACTIONS (5)
  - FALL [None]
  - HALLUCINATION [None]
  - RESTLESS LEGS SYNDROME [None]
  - SCRATCH [None]
  - SLEEP WALKING [None]
